FAERS Safety Report 4361060-X (Version None)
Quarter: 2004Q2

REPORT INFORMATION
  Report Type: 
  Country: None (occurrence: None)
  Receive Date: 20040517
  Receipt Date: 20040506
  Transmission Date: 20050107
  Serious: Yes (Hospitalization)
  Sender: FDA-Public Use
  Company Number: JP-JNJFOC-20040502553

PATIENT
  Sex: Female

DRUGS (11)
  1. OFLOXACIN [Suspect]
     Indication: PNEUMONIA
     Dosage: INTRAVENOUS
     Route: 042
     Dates: start: 20031215, end: 20031219
  2. RAMIPRIL [Suspect]
     Dosage: ORAL
     Route: 048
     Dates: start: 20031218, end: 20031219
  3. LEVOFLOXACIN [Suspect]
     Indication: PNEUMONIA
     Dosage: 500 MG ; 250 MG
     Dates: start: 20031219, end: 20031221
  4. LEVOFLOXACIN [Suspect]
     Indication: PNEUMONIA
     Dosage: 500 MG ; 250 MG
     Dates: start: 20031221, end: 20031226
  5. AUGMENTIN [Concomitant]
  6. ROCEPHIN [Concomitant]
  7. OMEPRAZOLE [Concomitant]
  8. DIGOXIN [Concomitant]
  9. CORDARONE [Concomitant]
  10. PREVISCAN (FLUINDIONE) [Concomitant]
  11. PRAXIPARINE (HEPARIN-FRACTION, CALCIUM SALT) [Concomitant]

REACTIONS (8)
  - BACTERIA STOOL IDENTIFIED [None]
  - DIARRHOEA [None]
  - DRUG TOXICITY [None]
  - ENTEROBACTER INFECTION [None]
  - PNEUMONIA [None]
  - PYELONEPHRITIS [None]
  - RENAL FAILURE ACUTE [None]
  - STAPHYLOCOCCAL INFECTION [None]
